FAERS Safety Report 9438683 (Version 2)
Quarter: 2014Q1

REPORT INFORMATION
  Report Type: Report from Study
  Country: US (occurrence: US)
  Receive Date: 20130802
  Receipt Date: 20140225
  Transmission Date: 20141002
  Serious: Yes (Other)
  Sender: FDA-Public Use
  Company Number: US-BAYER-2013-091435

PATIENT
  Age: 67 Year
  Sex: Female

DRUGS (3)
  1. NEXAVAR [Suspect]
     Indication: PENILE CANCER
     Dosage: 400 MG, BID
     Route: 048
     Dates: start: 2009
  2. NEXAVAR [Suspect]
     Indication: PENILE CANCER
     Dosage: 400 MG, QOD
     Route: 048
  3. NEXAVAR [Suspect]
     Indication: PENILE CANCER
     Dosage: 2 PILLS PER DAY ON MONDAY, WEDNESDAY, FRIDAY
     Route: 048
     Dates: start: 20120120

REACTIONS (3)
  - Single functional kidney [None]
  - Blister [None]
  - Off label use [None]
